FAERS Safety Report 8577567 (Version 2)
Quarter: 2012Q4

REPORT INFORMATION
  Report Type: 
  Country: US (occurrence: US)
  Receive Date: 20120524
  Receipt Date: 20120830
  Transmission Date: 20130627
  Serious: Yes (Other)
  Sender: FDA-Public Use
  Company Number: US-BAYER-2012-050666

PATIENT
  Age: 17 Year
  Sex: Female
  Weight: 61.22 kg

DRUGS (8)
  1. YASMIN [Suspect]
     Indication: ACNE
     Dosage: UNK
     Dates: start: 20041222, end: 200511
  2. TORADOL [Concomitant]
     Dosage: 30 mg, UNK
     Route: 042
  3. PEPCID [Concomitant]
     Dosage: 20 mg, UNK
     Route: 042
  4. ZOFRAN [Concomitant]
     Dosage: 4 mg, UNK
     Route: 048
  5. NEXIUM [Concomitant]
     Dosage: 40 mg, UNK
     Route: 048
  6. STRATTERA [Concomitant]
  7. PROZAC [Concomitant]
     Dosage: UNK
  8. RECLIPSEN [Concomitant]

REACTIONS (9)
  - Thrombophlebitis superficial [None]
  - Gallbladder disorder [None]
  - Cholecystitis chronic [None]
  - Injury [None]
  - Pain [None]
  - General physical health deterioration [None]
  - Emotional distress [None]
  - Anxiety [None]
  - Anhedonia [None]
